FAERS Safety Report 8128471-8 (Version None)
Quarter: 2011Q4

REPORT INFORMATION
  Report Type: 
  Country: None (occurrence: None)
  Receive Date: 20111227
  Receipt Date: 20111020
  Transmission Date: 20120403
  Serious: No
  Sender: FDA-Public Use
  Company Number: PHEH2011US07522

PATIENT
  Age: 26 Year
  Sex: Male

DRUGS (2)
  1. GILENYA [Suspect]
  2. IBUPROFEN [Concomitant]

REACTIONS (1)
  - THERAPEUTIC RESPONSE UNEXPECTED [None]
